FAERS Safety Report 5012379-0 (Version None)
Quarter: 2006Q2

REPORT INFORMATION
  Report Type: 
  Country: None (occurrence: None)
  Receive Date: 20060414
  Receipt Date: 20060119
  Transmission Date: 20061013
  Serious: No
  Sender: FDA-Public Use
  Company Number: 2006SP000346

PATIENT
  Age: 34 Year
  Sex: Female
  Weight: 62.5964 kg

DRUGS (5)
  1. LUNESTA [Suspect]
     Indication: INSOMNIA
     Dosage: 3 MG; HS; ORAL
     Route: 048
     Dates: start: 20060117, end: 20060118
  2. WELLBUTRIN [Concomitant]
  3. LAMOTRIGINE [Concomitant]
  4. SYNTHROID [Concomitant]
  5. SEROQUEL [Concomitant]

REACTIONS (6)
  - DIZZINESS [None]
  - DYSPEPSIA [None]
  - ERUCTATION [None]
  - INITIAL INSOMNIA [None]
  - NAUSEA [None]
  - VOMITING [None]
